FAERS Safety Report 6003495-5 (Version None)
Quarter: 2008Q4

REPORT INFORMATION
  Report Type: 
  Country: None (occurrence: None)
  Receive Date: 20081216
  Receipt Date: 20081212
  Transmission Date: 20090506
  Serious: Yes (Other)
  Sender: FDA-Public Use
  Company Number: US-BRISTOL-MYERS SQUIBB COMPANY-14442016

PATIENT
  Age: 86 Year
  Sex: Male
  Weight: 54 kg

DRUGS (3)
  1. GLUCOPHAGE [Suspect]
     Indication: TYPE 2 DIABETES MELLITUS
  2. COREG [Concomitant]
  3. LASIX [Concomitant]

REACTIONS (5)
  - ANOREXIA [None]
  - ASTHENIA [None]
  - DYSPNOEA [None]
  - LACTIC ACIDOSIS [None]
  - PULMONARY OEDEMA [None]
